FAERS Safety Report 9427895 (Version 1)
Quarter: 2013Q3

REPORT INFORMATION
  Report Type: Spontaneous
  Country: FR (occurrence: FR)
  Receive Date: 20130730
  Receipt Date: 20130730
  Transmission Date: 20140515
  Serious: Yes (Hospitalization)
  Sender: FDA-Public Use
  Company Number: FR-PFIZER INC-2013219445

PATIENT
  Age: 83 Year
  Sex: Male

DRUGS (8)
  1. ATENOLOL [Suspect]
     Dosage: 25 MG, 1X/DAY
     Route: 048
  2. CORTANCYL [Concomitant]
     Dosage: 15 MG, DAILY
     Route: 065
  3. MOPRAL [Concomitant]
     Dosage: 20 MG, DAILY
     Route: 065
  4. CACIT D3 [Concomitant]
     Dosage: UNK
     Route: 065
  5. KARDEGIC [Concomitant]
     Dosage: 75 MG, DAILY
     Route: 065
  6. ALLOPURINOL [Concomitant]
     Dosage: UNK
     Route: 065
  7. NOOTROPYL [Concomitant]
     Dosage: 800 MG, DAILY
     Route: 065
  8. CERVOXAN [Concomitant]
     Dosage: 60 MG, DAILKY
     Route: 065

REACTIONS (1)
  - Retroperitoneal fibrosis [Unknown]
